FAERS Safety Report 15460048 (Version 1)
Quarter: 2018Q4

REPORT INFORMATION
  Report Type: Spontaneous
  Country: US (occurrence: US)
  Receive Date: 20181003
  Receipt Date: 20181003
  Transmission Date: 20190204
  Serious: No
  Sender: FDA-Public Use
  Company Number: US-BAYER-2018-182807

PATIENT
  Age: 57 Year
  Sex: Female

DRUGS (1)
  1. ESTRADIOL HEMIHYDRATE [Suspect]
     Active Substance: ESTRADIOL HEMIHYDRATE
     Dosage: 0.6 MG, UNK
     Route: 062
     Dates: end: 20180613

REACTIONS (4)
  - Application site erythema [Not Recovered/Not Resolved]
  - Skin erosion [Not Recovered/Not Resolved]
  - Application site haemorrhage [Recovered/Resolved]
  - Application site exfoliation [None]

NARRATIVE: CASE EVENT DATE: 20180513
